FAERS Safety Report 5088844-7 (Version None)
Quarter: 2006Q3

REPORT INFORMATION
  Report Type: 
  Country: None (occurrence: None)
  Receive Date: 20060825
  Receipt Date: 20050929
  Transmission Date: 20061208
  Serious: Yes (Disabling)
  Sender: FDA-Public Use
  Company Number: JP-ROCHE-419704

PATIENT
  Age: 39 Year
  Sex: Female
  Weight: 68 kg

DRUGS (5)
  1. VESANOID [Suspect]
     Indication: ACUTE PROMYELOCYTIC LEUKAEMIA
     Route: 048
     Dates: start: 20050210, end: 20050223
  2. VESANOID [Suspect]
     Route: 048
     Dates: start: 20050513, end: 20050526
  3. VESANOID [Suspect]
     Route: 048
     Dates: start: 20050819, end: 20050901
  4. SOLU-CORTEF [Suspect]
     Indication: PROPHYLAXIS
     Route: 042
     Dates: start: 20040824, end: 20050119
  5. PASTARON [Concomitant]
     Route: 061
     Dates: start: 20050210, end: 20050331

REACTIONS (1)
  - OSTEONECROSIS [None]
